FAERS Safety Report 6665331-3 (Version None)
Quarter: 2010Q1

REPORT INFORMATION
  Report Type: 
  Country: None (occurrence: None)
  Receive Date: 20100330
  Receipt Date: 20100315
  Transmission Date: 20100710
  Serious: Yes (Death)
  Sender: FDA-Public Use
  Company Number: CO-JNJFOC-20100304282

PATIENT
  Sex: Male

DRUGS (1)
  1. DACOGEN [Suspect]
     Indication: ACUTE MYELOID LEUKAEMIA
     Dosage: 15 MG/M2, 1 IN 8 HOUR
     Dates: start: 20100210, end: 20100301

REACTIONS (1)
  - DEATH [None]
